FAERS Safety Report 9580525 (Version 1)
Quarter: 2013Q3

REPORT INFORMATION
  Report Type: Spontaneous
  Country: US (occurrence: None)
  Receive Date: 20130916
  Receipt Date: 20130916
  Transmission Date: 20140515
  Serious: Yes (Other)
  Sender: FDA-Public Use
  Company Number: JPI-P-031582

PATIENT
  Age: 25 Year
  Sex: Female
  Weight: 62.6 kg

DRUGS (4)
  1. XYREM [Suspect]
     Indication: NARCOLEPSY
     Dosage: 4.5 GM (2.25 GM, 2 IN 1 D), ORAL
     Route: 048
     Dates: start: 20130405, end: 20130408
  2. XYREM [Suspect]
     Indication: SOMNOLENCE
     Dosage: 4.5 GM (2.25 GM, 2 IN 1 D), ORAL
     Route: 048
     Dates: start: 20130405, end: 20130408
  3. METOPROLOL [Concomitant]
  4. NUVIGIL (ARMODAFINIL) [Concomitant]

REACTIONS (16)
  - Hypertension [None]
  - Tachycardia [None]
  - Insomnia [None]
  - Drug ineffective [None]
  - Feeling hot [None]
  - Anger [None]
  - Retching [None]
  - Moaning [None]
  - Abnormal dreams [None]
  - Dizziness [None]
  - Nausea [None]
  - Local swelling [None]
  - Local swelling [None]
  - Paraesthesia [None]
  - Somnolence [None]
  - Condition aggravated [None]
